FAERS Safety Report 9718830 (Version 8)
Quarter: 2014Q4

REPORT INFORMATION
  Report Type: Report from Study
  Country: SE (occurrence: SE)
  Receive Date: 20131127
  Receipt Date: 20141203
  Transmission Date: 20150529
  Serious: Yes (Hospitalization)
  Sender: FDA-Public Use
  Company Number: SE-ASTRAZENECA-2013SE83027

PATIENT
  Age: 25909 Day
  Sex: Male

DRUGS (15)
  1. TROMBYL [Suspect]
     Active Substance: ASPIRIN
     Route: 048
     Dates: start: 20130920, end: 20131003
  2. ATACAND PLUS [Concomitant]
     Active Substance: CANDESARTAN CILEXETIL\HYDROCHLOROTHIAZIDE
     Indication: HYPERTENSION
     Route: 048
  3. SUSCARD [Concomitant]
     Active Substance: NITROGLYCERIN
     Indication: ANGINA PECTORIS
     Dosage: AS NEEDED.
     Route: 048
  4. TROMBYL [Suspect]
     Active Substance: ASPIRIN
     Route: 048
     Dates: start: 20131029
  5. STUDY PROCEDURE [Suspect]
     Active Substance: INVESTIGATIONAL PRODUCT
     Indication: CORONARY ARTERY DISEASE
     Route: 065
  6. AZD6140 [Suspect]
     Active Substance: TICAGRELOR
     Indication: CORONARY ARTERY DISEASE
     Route: 048
     Dates: start: 20130909, end: 20131003
  7. XATRAL OD [Concomitant]
     Active Substance: ALFUZOSIN
     Indication: BENIGN PROSTATIC HYPERPLASIA
     Route: 048
     Dates: start: 20110929
  8. ALLOPURINOL. [Concomitant]
     Active Substance: ALLOPURINOL
     Indication: GOUT
     Route: 048
  9. AZD6140 [Suspect]
     Active Substance: TICAGRELOR
     Indication: CORONARY ARTERY DISEASE
     Route: 048
     Dates: start: 20111012, end: 20130906
  10. DUROFERON [Concomitant]
     Active Substance: FERROUS SULFATE\FERROUS SULFATE, DRIED
     Indication: GASTRIC ULCER HAEMORRHAGE
     Route: 048
     Dates: start: 20130908, end: 20131006
  11. SIMVASTATIN. [Concomitant]
     Active Substance: SIMVASTATIN
     Indication: HYPERCHOLESTEROLAEMIA
     Route: 048
  12. METFORMIN [Concomitant]
     Active Substance: METFORMIN HYDROCHLORIDE
     Indication: TYPE 2 DIABETES MELLITUS
     Route: 048
  13. TROMBYL [Suspect]
     Active Substance: ASPIRIN
     Route: 048
     Dates: end: 20130907
  14. WARFARIN [Concomitant]
     Active Substance: WARFARIN
     Indication: ACUTE CORONARY SYNDROME
     Route: 048
     Dates: start: 20130226
  15. METOPROLOL [Concomitant]
     Active Substance: METOPROLOL
     Indication: ACUTE CORONARY SYNDROME
     Route: 048

REACTIONS (1)
  - Haemorrhagic erosive gastritis [Recovered/Resolved]

NARRATIVE: CASE EVENT DATE: 20131003
